FAERS Safety Report 25683835 (Version 2)
Quarter: 2025Q3

REPORT INFORMATION
  Report Type: Report from Study
  Country: CA (occurrence: CA)
  Receive Date: 20250814
  Receipt Date: 20250820
  Transmission Date: 20251021
  Serious: Yes (Other)
  Sender: ABBVIE
  Company Number: CA-ABBVIE-6413850

PATIENT
  Age: 41 Year
  Sex: Female

DRUGS (5)
  1. SKYRIZI [Suspect]
     Active Substance: RISANKIZUMAB-RZAA
     Indication: Product used for unknown indication
     Route: 058
  2. RINVOQ [Suspect]
     Active Substance: UPADACITINIB
     Indication: Crohn^s disease
     Dosage: FORM STRENGTH: 30 MILLIGRAM
     Route: 048
  3. WEGOVY [Concomitant]
     Active Substance: SEMAGLUTIDE
     Indication: Product used for unknown indication
  4. VENLAFAXINE [Concomitant]
     Active Substance: VENLAFAXINE HYDROCHLORIDE
     Indication: Product used for unknown indication
  5. DEPO-PROVERA [Concomitant]
     Active Substance: MEDROXYPROGESTERONE ACETATE
     Indication: Product used for unknown indication

REACTIONS (15)
  - Stoma creation [Unknown]
  - Colectomy [Unknown]
  - Surgery [Unknown]
  - Productive cough [Unknown]
  - Chest pain [Unknown]
  - Dyspnoea [Unknown]
  - Oropharyngeal pain [Recovered/Resolved]
  - Upper respiratory tract infection [Unknown]
  - Rhinorrhoea [Unknown]
  - Nasal congestion [Unknown]
  - Chills [Unknown]
  - Colitis ulcerative [Unknown]
  - Musculoskeletal chest pain [Unknown]
  - Central obesity [Unknown]
  - Scar [Recovering/Resolving]

NARRATIVE: CASE EVENT DATE: 20250806
